FAERS Safety Report 16204361 (Version 1)
Quarter: 2019Q2

REPORT INFORMATION
  Report Type: Spontaneous
  Country: DE (occurrence: DE)
  Receive Date: 20190416
  Receipt Date: 20190416
  Transmission Date: 20190711
  Serious: Yes (Death)
  Sender: FDA-Public Use
  Company Number: PHHY2019DE087060

PATIENT
  Age: 3 Year
  Sex: Male

DRUGS (1)
  1. CODEINE PHOSPHATE [Suspect]
     Active Substance: CODEINE PHOSPHATE
     Indication: PRODUCT USED FOR UNKNOWN INDICATION
     Dosage: 10 GTT, QD
     Route: 048

REACTIONS (6)
  - Pneumonia aspiration [Fatal]
  - Aspiration [Fatal]
  - Overdose [Fatal]
  - Vomiting [Fatal]
  - Brain oedema [Fatal]
  - Toxicity to various agents [Fatal]
